FAERS Safety Report 5605618-6 (Version None)
Quarter: 2008Q1

REPORT INFORMATION
  Report Type: 
  Country: None (occurrence: None)
  Receive Date: 20080125
  Receipt Date: 20080125
  Transmission Date: 20080703
  Serious: Yes (Hospitalization)
  Sender: FDA-Public Use
  Company Number: None

PATIENT
  Age: 85 Year
  Sex: Female

DRUGS (2)
  1. ASPIRIN [Suspect]
     Indication: MYOCARDIAL INFARCTION
     Dosage: 81MG DAILY PO PAST YEAR
     Route: 048
  2. PLAVIX [Suspect]
     Indication: MYOCARDIAL INFARCTION
     Dosage: 75MG DAILY PO PAST YEAR
     Route: 048

REACTIONS (6)
  - FATIGUE [None]
  - GASTROINTESTINAL SOUNDS ABNORMAL [None]
  - HAEMATEMESIS [None]
  - HAEMATOCHEZIA [None]
  - MELAENA [None]
  - ULCER HAEMORRHAGE [None]
